FAERS Safety Report 8886144 (Version 43)
Quarter: 2016Q4

REPORT INFORMATION
  Report Type: Report from Study
  Country: CA (occurrence: CA)
  Receive Date: 20121105
  Receipt Date: 20161115
  Transmission Date: 20170207
  Serious: Yes (Hospitalization, Other)
  Sender: FDA-Public Use
  Company Number: CA-ROCHE-1144675

PATIENT
  Age: 49 Year
  Sex: Female
  Weight: 73 kg

DRUGS (42)
  1. ACTEMRA [Suspect]
     Active Substance: TOCILIZUMAB
     Route: 042
     Dates: start: 20120802
  2. ACTEMRA [Suspect]
     Active Substance: TOCILIZUMAB
     Route: 042
     Dates: start: 20150528
  3. GLUTAMINE [Concomitant]
     Active Substance: GLUTAMINE
  4. ACTEMRA [Suspect]
     Active Substance: TOCILIZUMAB
     Route: 042
     Dates: start: 20150625
  5. ACTEMRA [Suspect]
     Active Substance: TOCILIZUMAB
     Route: 042
     Dates: start: 20150917
  6. ACTEMRA [Suspect]
     Active Substance: TOCILIZUMAB
     Route: 042
     Dates: start: 20160727
  7. ACTEMRA [Suspect]
     Active Substance: TOCILIZUMAB
     Indication: RHEUMATOID ARTHRITIS
     Route: 058
     Dates: start: 20141119, end: 20150402
  8. CLONAZEPAM. [Concomitant]
     Active Substance: CLONAZEPAM
  9. NASONEX [Concomitant]
     Active Substance: MOMETASONE FUROATE
  10. ESTRACE [Concomitant]
     Active Substance: ESTRADIOL
  11. CORTISONE [Concomitant]
     Active Substance: CORTISONE\HYDROCORTISONE
     Route: 065
     Dates: start: 20140501
  12. ACTEMRA [Suspect]
     Active Substance: TOCILIZUMAB
     Route: 042
     Dates: start: 20130827
  13. ACTEMRA [Suspect]
     Active Substance: TOCILIZUMAB
     Dosage: SINGLE DOSE
     Route: 042
     Dates: start: 20141014
  14. METAMUCIL [Suspect]
     Active Substance: PLANTAGO SEED
     Indication: CONSTIPATION
     Route: 065
  15. SENOKOT [Suspect]
     Active Substance: SENNOSIDES
     Indication: CONSTIPATION
     Route: 065
  16. PREDNISONE. [Suspect]
     Active Substance: PREDNISONE
     Route: 065
     Dates: start: 20150410
  17. EURO-FOLIC [Concomitant]
  18. METHOTREXATE. [Concomitant]
     Active Substance: METHOTREXATE
  19. ACTEMRA [Suspect]
     Active Substance: TOCILIZUMAB
     Route: 042
     Dates: start: 20130422
  20. ACTEMRA [Suspect]
     Active Substance: TOCILIZUMAB
     Route: 042
     Dates: start: 20130730
  21. APO-HYDROXYQUINE [Concomitant]
     Active Substance: HYDROXYCHLOROQUINE SULFATE
  22. APO-MEDROXY [Concomitant]
  23. ACTEMRA [Suspect]
     Active Substance: TOCILIZUMAB
     Indication: RHEUMATOID ARTHRITIS
     Route: 042
     Dates: start: 20120607
  24. ACTEMRA [Suspect]
     Active Substance: TOCILIZUMAB
     Route: 042
     Dates: start: 20150407
  25. PANTOLOC [Concomitant]
     Active Substance: PANTOPRAZOLE SODIUM
  26. DOCUSATE SODIUM. [Concomitant]
     Active Substance: DOCUSATE SODIUM
  27. ACTEMRA [Suspect]
     Active Substance: TOCILIZUMAB
     Route: 042
     Dates: start: 20120830
  28. ACTEMRA [Suspect]
     Active Substance: TOCILIZUMAB
     Route: 042
     Dates: start: 20121128
  29. ACTEMRA [Suspect]
     Active Substance: TOCILIZUMAB
     Route: 042
     Dates: start: 20160331
  30. ACTEMRA [Suspect]
     Active Substance: TOCILIZUMAB
     Route: 042
     Dates: start: 20160602
  31. MEDROXY [Concomitant]
     Active Substance: MEDROXYPROGESTERONE ACETATE
  32. PREDNISONE. [Suspect]
     Active Substance: PREDNISONE
     Indication: PRODUCT USED FOR UNKNOWN INDICATION
     Route: 065
  33. RANITIDINE. [Concomitant]
     Active Substance: RANITIDINE
  34. DOMPERIDONE [Concomitant]
     Active Substance: DOMPERIDONE
  35. NOVAMILOR [Concomitant]
  36. ACTEMRA [Suspect]
     Active Substance: TOCILIZUMAB
     Route: 042
     Dates: start: 20140703
  37. ACTEMRA [Suspect]
     Active Substance: TOCILIZUMAB
     Route: 042
     Dates: start: 20150820
  38. ACTEMRA [Suspect]
     Active Substance: TOCILIZUMAB
     Route: 042
     Dates: start: 20161006, end: 20161006
  39. COLACE [Suspect]
     Active Substance: DOCUSATE SODIUM
     Indication: CONSTIPATION
     Route: 065
  40. LYRICA [Concomitant]
     Active Substance: PREGABALIN
  41. DOMPERIDONE [Concomitant]
     Active Substance: DOMPERIDONE
  42. METHOTREXATE. [Concomitant]
     Active Substance: METHOTREXATE

REACTIONS (46)
  - Arthritis [Unknown]
  - Pain in extremity [Not Recovered/Not Resolved]
  - Arthralgia [Not Recovered/Not Resolved]
  - Nasal congestion [Unknown]
  - Salivary hypersecretion [Unknown]
  - Injection site extravasation [Unknown]
  - Herpes zoster [Recovered/Resolved]
  - Oropharyngeal pain [Recovering/Resolving]
  - Cough [Not Recovered/Not Resolved]
  - Bronchitis [Not Recovered/Not Resolved]
  - Menopause [Unknown]
  - Hypoaesthesia [Unknown]
  - Mammogram abnormal [Unknown]
  - Vulvovaginal pruritus [Unknown]
  - Arthralgia [Not Recovered/Not Resolved]
  - Pruritus [Recovered/Resolved]
  - Bronchitis [Recovered/Resolved]
  - Medication error [Unknown]
  - Constipation [Not Recovered/Not Resolved]
  - Device leakage [Unknown]
  - Drug administration error [Unknown]
  - Cough [Unknown]
  - Headache [Recovered/Resolved]
  - Erythema [Recovered/Resolved]
  - Seasonal allergy [Recovering/Resolving]
  - Femur fracture [Not Recovered/Not Resolved]
  - Drug ineffective [Unknown]
  - Rheumatoid arthritis [Not Recovered/Not Resolved]
  - Weight increased [Unknown]
  - Blood pressure increased [Unknown]
  - Vascular rupture [Unknown]
  - Vulvovaginal dryness [Recovered/Resolved]
  - Musculoskeletal stiffness [Not Recovered/Not Resolved]
  - Acne [Not Recovered/Not Resolved]
  - Nasopharyngitis [Not Recovered/Not Resolved]
  - Blood pressure increased [Not Recovered/Not Resolved]
  - Musculoskeletal pain [Not Recovered/Not Resolved]
  - Headache [Unknown]
  - Weight decreased [Unknown]
  - Vaginal infection [Not Recovered/Not Resolved]
  - Wheezing [Recovering/Resolving]
  - Influenza [Recovered/Resolved]
  - Gastroenteritis [Recovered/Resolved]
  - Abdominal pain upper [Unknown]
  - Diarrhoea [Unknown]
  - Mouth injury [Unknown]

NARRATIVE: CASE EVENT DATE: 20121017
